FAERS Safety Report 5175268-7 (Version None)
Quarter: 2006Q4

REPORT INFORMATION
  Report Type: 
  Country: None (occurrence: None)
  Receive Date: 20061211
  Receipt Date: 20061211
  Transmission Date: 20070319
  Serious: Yes (Other)
  Sender: FDA-Public Use
  Company Number: None

PATIENT
  Age: 80 Year
  Sex: Female
  Weight: 77.1115 kg

DRUGS (1)
  1. CLOPIDOGREL [Suspect]
     Indication: CARDIOVASCULAR DISORDER
     Dosage: BY MOUTH DAILY
     Route: 048

REACTIONS (1)
  - CONTUSION [None]
